FAERS Safety Report 12876090 (Version 1)
Quarter: 2016Q4

REPORT INFORMATION
  Report Type: Spontaneous
  Country: US (occurrence: US)
  Receive Date: 20161021
  Receipt Date: 20161021
  Transmission Date: 20170207
  Serious: No
  Sender: FDA-Public Use
  Company Number: None

PATIENT
  Age: 66 Year
  Sex: Female
  Weight: 69.46 kg

DRUGS (3)
  1. BISOPROLOL [Concomitant]
     Active Substance: BISOPROLOL
  2. PROLIA [Suspect]
     Active Substance: DENOSUMAB
  3. VITAMIN D3 [Concomitant]
     Active Substance: CHOLECALCIFEROL

REACTIONS (9)
  - Back pain [None]
  - Chills [None]
  - Influenza like illness [None]
  - Bone pain [None]
  - Arthralgia [None]
  - Myalgia [None]
  - Pain [None]
  - Rash pruritic [None]
  - Nausea [None]
